FAERS Safety Report 24370184 (Version 1)
Quarter: 2024Q3

REPORT INFORMATION
  Report Type: Report from Study
  Country: US (occurrence: US)
  Receive Date: 20240927
  Receipt Date: 20240927
  Transmission Date: 20241017
  Serious: No
  Sender: ROCHE
  Company Number: US-ROCHE-3561624

PATIENT
  Age: 56 Year
  Sex: Male

DRUGS (8)
  1. LUCENTIS [Suspect]
     Active Substance: RANIBIZUMAB
     Indication: Macular oedema
     Dosage: (0.05ML), INJECTION 0.3MG /0.05 ML OD.
     Route: 050
  2. LUCENTIS [Suspect]
     Active Substance: RANIBIZUMAB
     Indication: Retinal tear
     Dosage: (0.05ML), INJECTION  0.3MG /0.05 ML OS
     Route: 050
  3. LUCENTIS [Suspect]
     Active Substance: RANIBIZUMAB
     Indication: Ocular hypertension
  4. LUCENTIS [Suspect]
     Active Substance: RANIBIZUMAB
     Indication: Vitreous degeneration
  5. LUCENTIS [Suspect]
     Active Substance: RANIBIZUMAB
     Indication: Vitreous opacities
  6. LUCENTIS [Suspect]
     Active Substance: RANIBIZUMAB
     Indication: Myopia
  7. LUCENTIS [Suspect]
     Active Substance: RANIBIZUMAB
     Indication: Intraocular lens implant
  8. AVASTIN [Suspect]
     Active Substance: BEVACIZUMAB
     Indication: Macular oedema
     Dosage: INJECTION 0.05 ML
     Route: 065

REACTIONS (2)
  - Off label use [Unknown]
  - No adverse event [Unknown]
